FAERS Safety Report 11708451 (Version 1)
Quarter: 2015Q4

REPORT INFORMATION
  Report Type: Spontaneous
  Country: US (occurrence: US)
  Receive Date: 20151104
  Receipt Date: 20151104
  Transmission Date: 20160304
  Serious: Yes (Other)
  Sender: FDA-Public Use
  Company Number: US-ELI_LILLY_AND_COMPANY-US201101002151

PATIENT
  Sex: Female
  Weight: 44.9 kg

DRUGS (5)
  1. FORTEO [Suspect]
     Active Substance: TERIPARATIDE
     Indication: OSTEOPOROSIS
     Dosage: 20 UG, DAILY (1/D)
     Route: 058
     Dates: start: 20110104, end: 20110117
  2. PREDNISONE. [Concomitant]
     Active Substance: PREDNISONE
     Dosage: 5 MG/1.5, DAILY (1/D)
     Route: 065
  3. CALCIUM WITH VITAMIN D [Concomitant]
     Active Substance: CALCIUM\VITAMIN D
     Dosage: 600 MG, 2/D
     Route: 065
  4. VICODIN [Concomitant]
     Active Substance: ACETAMINOPHEN\HYDROCODONE BITARTRATE
     Dosage: 5/500, AS NEEDED
     Route: 065
  5. VITAMIN D [Concomitant]
     Active Substance: CHOLECALCIFEROL
     Dosage: 1000 U, DAILY (1/D)
     Route: 065

REACTIONS (19)
  - Bone pain [Unknown]
  - Burning sensation [Unknown]
  - Back pain [Unknown]
  - Coordination abnormal [Unknown]
  - Musculoskeletal discomfort [Unknown]
  - Venous injury [Unknown]
  - Arthralgia [Unknown]
  - Myalgia [Unknown]
  - Blister [Unknown]
  - Pain [Unknown]
  - Intentional product misuse [Unknown]
  - Lip swelling [Unknown]
  - Pain in extremity [Unknown]
  - Psoriasis [Unknown]
  - Pruritus [Unknown]
  - Erythema [Unknown]
  - Injection site bruising [Unknown]
  - Hypersensitivity [Unknown]
  - Rash [Unknown]
